FAERS Safety Report 9052391 (Version 3)
Quarter: 2013Q2

REPORT INFORMATION
  Report Type: Spontaneous
  Country: US (occurrence: US)
  Receive Date: 20130207
  Receipt Date: 20130424
  Transmission Date: 20140414
  Serious: Yes (Disabling)
  Sender: FDA-Public Use
  Company Number: US-009507513-1302USA002578

PATIENT
  Sex: Female
  Weight: 94.79 kg

DRUGS (4)
  1. JANUVIA [Suspect]
     Indication: TYPE 2 DIABETES MELLITUS
     Dosage: 50 MG, DAILY
     Route: 048
     Dates: start: 20130129, end: 20130130
  2. SIMVASTATIN [Concomitant]
  3. LISINOPRIL [Concomitant]
  4. VITAMINS (UNSPECIFIED) [Concomitant]

REACTIONS (6)
  - Pollakiuria [Recovered/Resolved]
  - Micturition urgency [Recovered/Resolved]
  - Bladder discomfort [Recovered/Resolved]
  - Abdominal discomfort [Recovered/Resolved]
  - Headache [Unknown]
  - Bladder disorder [Recovered/Resolved]
